FAERS Safety Report 9568005 (Version 1)
Quarter: 2013Q3

REPORT INFORMATION
  Report Type: Spontaneous
  Country: US (occurrence: US)
  Receive Date: 20130930
  Receipt Date: 20130930
  Transmission Date: 20140515
  Serious: No
  Sender: FDA-Public Use
  Company Number: US-AMGEN-USASP2013056878

PATIENT
  Age: 42 Year
  Sex: Female
  Weight: 76.19 kg

DRUGS (7)
  1. ENBREL [Suspect]
     Indication: PRODUCT USED FOR UNKNOWN INDICATION
     Dosage: 50 MG, QWK
     Route: 058
  2. ZYRTEC ALLERGY [Concomitant]
     Dosage: 10 MG, UNK
     Route: 048
  3. FISH OIL [Concomitant]
     Dosage: UNK
     Route: 048
  4. CALCIUM [Concomitant]
     Dosage: 500 UNK, UNK
     Route: 048
  5. VITAMIN B 12 [Concomitant]
     Dosage: 5000 MUG, UNK (SUB)
     Route: 048
  6. MULTIVITAMINS, PLAIN [Concomitant]
     Dosage: UNK
     Route: 048
  7. IRON + VITAMIN C [Concomitant]
     Dosage: (65-125) MG, UNK
     Route: 058

REACTIONS (2)
  - Injection site reaction [Unknown]
  - Injection site erythema [Unknown]
